FAERS Safety Report 9584628 (Version 1)
Quarter: 2013Q4

REPORT INFORMATION
  Report Type: Spontaneous
  Country: US (occurrence: US)
  Receive Date: 20131002
  Receipt Date: 20131002
  Transmission Date: 20140711
  Serious: No
  Sender: FDA-Public Use
  Company Number: US-AMGEN-USASP2013054259

PATIENT
  Age: 38 Year
  Sex: Female

DRUGS (8)
  1. ENBREL [Suspect]
     Indication: PRODUCT USED FOR UNKNOWN INDICATION
     Dosage: 50 MG, QWK
     Route: 058
  2. MEDROL                             /00049601/ [Concomitant]
     Dosage: 16 MG, UNK
  3. NEXIUM                             /01479302/ [Concomitant]
     Dosage: 40 MG, UNK
  4. LIBRAX                             /00033301/ [Concomitant]
     Dosage: 5-25 MG
  5. GLUCOSAMINE [Concomitant]
     Dosage: 1500 UNK, UNK
  6. VITAMIN E                          /00110501/ [Concomitant]
     Dosage: 400 UNIT, CHEWABLE,UNK
  7. TYLENOL                            /00020001/ [Concomitant]
     Dosage: 500 MG, UNK
  8. SULFASALAZINE [Concomitant]
     Dosage: 500 MG, UNK

REACTIONS (1)
  - Contusion [Unknown]
